FAERS Safety Report 6137602-0 (Version None)
Quarter: 2009Q1

REPORT INFORMATION
  Report Type: 
  Country: None (occurrence: None)
  Receive Date: 20090331
  Receipt Date: 20090325
  Transmission Date: 20090719
  Serious: No
  Sender: FDA-Public Use
  Company Number: KR-JNJFOC-20090306103

PATIENT
  Age: 80 Year
  Sex: Female

DRUGS (2)
  1. DURAGESIC-100 [Suspect]
     Route: 062
  2. DURAGESIC-100 [Suspect]
     Indication: CANCER PAIN
     Dosage: PNR (AS REQUIRED)
     Route: 062

REACTIONS (3)
  - DRUG INEFFECTIVE [None]
  - DRUG PRESCRIBING ERROR [None]
  - WRONG TECHNIQUE IN DRUG USAGE PROCESS [None]
